FAERS Safety Report 11380078 (Version 1)
Quarter: 2015Q3

REPORT INFORMATION
  Report Type: Spontaneous
  Country: RS (occurrence: RS)
  Receive Date: 20150814
  Receipt Date: 20150814
  Transmission Date: 20151125
  Serious: Yes (Death, Other)
  Sender: FDA-Public Use
  Company Number: PHHY2015RS097188

PATIENT
  Sex: Female

DRUGS (6)
  1. SANDOSTATIN LAR DEPOT [Suspect]
     Active Substance: OCTREOTIDE ACETATE
     Indication: ACROMEGALY
     Dosage: 30 MG, QMO (PER 28TH DAYS)
     Route: 030
     Dates: start: 20120131
  2. GLUFORMIN [Concomitant]
     Active Substance: METFORMIN HYDROCHLORIDE
     Indication: DIABETES MELLITUS
     Dosage: 3 X 1000 MG PER DAY
     Route: 048
  3. CHOLIPAM [Concomitant]
     Indication: HYPERLIPIDAEMIA
     Dosage: 1 X 10  MG PER DAY
     Route: 048
  4. LOTAR [Concomitant]
     Active Substance: AMLODIPINE\LOSARTAN
     Indication: HYPERTENSION
     Route: 048
  5. CARVILEX [Concomitant]
     Indication: HYPERTENSION
     Route: 048
  6. NORVASC [Concomitant]
     Active Substance: AMLODIPINE BESYLATE
     Indication: HYPERTENSION
     Dosage: 2 X 5 MG, UNK
     Route: 048

REACTIONS (4)
  - Embolism [Fatal]
  - Cardiopulmonary failure [Fatal]
  - Non-Hodgkin^s lymphoma [Unknown]
  - B-cell lymphoma [Unknown]

NARRATIVE: CASE EVENT DATE: 2014
